FAERS Safety Report 8312615-9 (Version None)
Quarter: 2012Q2

REPORT INFORMATION
  Report Type: 
  Country: None (occurrence: None)
  Receive Date: 20120424
  Receipt Date: 20120420
  Transmission Date: 20120825
  Serious: Yes (Other)
  Sender: FDA-Public Use
  Company Number: ADR-2010-9398

PATIENT
  Age: 38 Year
  Sex: Female

DRUGS (1)
  1. LIORESAL [Suspect]
     Indication: MUSCLE SPASTICITY
     Dosage: DAILY, INTR
     Route: 037

REACTIONS (19)
  - MUSCULAR WEAKNESS [None]
  - HEADACHE [None]
  - OVERDOSE [None]
  - HYPOTENSION [None]
  - MUSCULOSKELETAL STIFFNESS [None]
  - DYSARTHRIA [None]
  - DEVICE CONNECTION ISSUE [None]
  - DEPRESSED LEVEL OF CONSCIOUSNESS [None]
  - ASTHENIA [None]
  - UNRESPONSIVE TO STIMULI [None]
  - TOXICITY TO VARIOUS AGENTS [None]
  - NAUSEA [None]
  - SOMNOLENCE [None]
  - MOVEMENT DISORDER [None]
  - SPEECH DISORDER [None]
  - MUSCLE SPASTICITY [None]
  - HYPOTONIA [None]
  - ABASIA [None]
  - INCONTINENCE [None]
